FAERS Safety Report 13851360 (Version 3)
Quarter: 2017Q4

REPORT INFORMATION
  Report Type: Report from Study
  Country: CA (occurrence: CA)
  Receive Date: 20170809
  Receipt Date: 20171004
  Transmission Date: 20180320
  Serious: Yes (Other)
  Sender: FDA-Public Use
  Company Number: CA-JNJFOC-20170806703

PATIENT
  Age: 69 Year
  Sex: Female
  Weight: 74.84 kg

DRUGS (1)
  1. SIMPONI [Suspect]
     Active Substance: GOLIMUMAB
     Indication: PSORIATIC ARTHROPATHY
     Route: 058
     Dates: start: 20170428

REACTIONS (4)
  - Heart rate increased [Recovered/Resolved]
  - Sinusitis [Recovered/Resolved]
  - Blood pressure increased [Unknown]
  - Gingivitis [Unknown]

NARRATIVE: CASE EVENT DATE: 20170710
